FAERS Safety Report 8788327 (Version 1)
Quarter: 2012Q4

REPORT INFORMATION
  Report Type: Report from Study
  Country: US (occurrence: US)
  Receive Date: 20120914
  Receipt Date: 20120914
  Transmission Date: 20130627
  Serious: No
  Sender: FDA-Public Use
  Company Number: US-VERTEX PHARMACEUTICAL INC.-AE-2012-011739

PATIENT
  Sex: Female

DRUGS (6)
  1. INCIVEK [Suspect]
     Indication: HEPATITIS C
     Route: 048
  2. PEGASYS [Concomitant]
     Indication: HEPATITIS C
  3. RIBAPAK PAK [Concomitant]
     Indication: HEPATITIS C
  4. MELATONIN [Concomitant]
  5. IRON [Concomitant]
  6. IBUPROFEN [Concomitant]

REACTIONS (10)
  - Dyspnoea [Unknown]
  - Anger [Unknown]
  - Arthralgia [Unknown]
  - Impaired healing [Unknown]
  - Tooth infection [Unknown]
  - Fatigue [Unknown]
  - Asthenia [Unknown]
  - Anaemia [Unknown]
  - Anorectal discomfort [Unknown]
  - Anal pruritus [Unknown]
